FAERS Safety Report 7914763-1 (Version None)
Quarter: 2011Q4

REPORT INFORMATION
  Report Type: 
  Country: None (occurrence: None)
  Receive Date: 20111115
  Receipt Date: 20111110
  Transmission Date: 20120403
  Serious: Yes (Other)
  Sender: FDA-Public Use
  Company Number: PHHY2011DE099325

PATIENT
  Sex: Female
  Weight: 64.5 kg

DRUGS (6)
  1. VITAMIN D [Concomitant]
     Indication: OSTEOPOROSIS
     Dosage: 1-0-0
  2. CALCIUM [Concomitant]
     Indication: OSTEOPOROSIS
     Dosage: 1-0-0
     Route: 048
  3. IBUPROFEN [Concomitant]
     Indication: PAIN
     Dosage: 2-3 TIMES PER YEAR PRN
  4. ZOLEDRONOC ACID [Suspect]
     Indication: OSTEOPOROSIS
     Dosage: 5 MG ONCE YEARLY
     Route: 042
     Dates: start: 20100401, end: 20100401
  5. ZOLEDRONOC ACID [Suspect]
     Dosage: 5 MG ONCE YEARLY
     Route: 042
     Dates: start: 20110615, end: 20110615
  6. ACETAMINOPHEN [Concomitant]
     Indication: PROPHYLAXIS
     Dosage: PRN 3 X 1 Q. D.

REACTIONS (2)
  - FALL [None]
  - WRIST FRACTURE [None]
